FAERS Safety Report 9532256 (Version 2)
Quarter: 2013Q3

REPORT INFORMATION
  Report Type: Report from Study
  Country: US (occurrence: US)
  Receive Date: 20130918
  Receipt Date: 20130918
  Transmission Date: 20140515
  Serious: Yes (Other)
  Sender: FDA-Public Use
  Company Number: US-BAXTER-2013BAX034378

PATIENT
  Age: 51 Year
  Sex: Female
  Weight: 50 kg

DRUGS (7)
  1. GAMMAGARD S/D [Suspect]
     Indication: PRIMARY IMMUNODEFICIENCY SYNDROME
     Route: 042
     Dates: start: 201112, end: 20130805
  2. GAMMAGARD S/D [Suspect]
     Route: 042
     Dates: start: 20130715, end: 20130715
  3. GAMMAGARD S/D [Suspect]
     Route: 042
     Dates: start: 20130805, end: 20130805
  4. GAMMAGARD LIQUID [Suspect]
     Indication: PRIMARY IMMUNODEFICIENCY SYNDROME
     Route: 042
     Dates: start: 2010
  5. GAMMAGARD LIQUID [Suspect]
     Route: 042
     Dates: end: 2011
  6. SYNTHROID [Concomitant]
     Indication: PRODUCT USED FOR UNKNOWN INDICATION
     Route: 048
     Dates: start: 1995
  7. DITROPAN [Concomitant]
     Indication: AUTOMATIC BLADDER
     Route: 048

REACTIONS (2)
  - Throat tightness [Recovered/Resolved]
  - Pruritus generalised [Recovering/Resolving]
